FAERS Safety Report 5322721-9 (Version None)
Quarter: 2007Q2

REPORT INFORMATION
  Report Type: 
  Country: None (occurrence: None)
  Receive Date: 20070511
  Receipt Date: 20070504
  Transmission Date: 20071010
  Serious: Yes (Hospitalization)
  Sender: FDA-Public Use
  Company Number: US-SHR-US-2007-015859

PATIENT
  Age: 17 Year
  Sex: Female
  Weight: 31 kg

DRUGS (7)
  1. YASMIN [Suspect]
     Dosage: 1 TAB(S), 1X/DAY
  2. LAMICTAL ^BURROUGHS WELLCOME^ [Concomitant]
  3. PREVACID [Concomitant]
  4. ZYRTEC [Concomitant]
  5. TOPAMAX [Concomitant]
  6. DIFLUCAN [Concomitant]
  7. NSAID'S [Concomitant]

REACTIONS (1)
  - CONVULSION [None]
